FAERS Safety Report 7071570-2 (Version None)
Quarter: 2010Q4

REPORT INFORMATION
  Report Type: 
  Country: None (occurrence: None)
  Receive Date: 20101029
  Receipt Date: 20090923
  Transmission Date: 20110411
  Serious: No
  Sender: FDA-Public Use
  Company Number: A0808695A

PATIENT
  Age: 50 Year
  Sex: Female

DRUGS (2)
  1. ADVAIR DISKUS 100/50 [Suspect]
     Indication: ASTHMA
     Dosage: 1PUFF TWICE PER DAY
     Route: 055
     Dates: start: 20090501, end: 20090901
  2. ACTOS [Concomitant]

REACTIONS (2)
  - EPISTAXIS [None]
  - OROPHARYNGEAL PAIN [None]
